FAERS Safety Report 10353574 (Version 2)
Quarter: 2014Q3

REPORT INFORMATION
  Report Type: Spontaneous
  Country: US (occurrence: US)
  Receive Date: 20140731
  Receipt Date: 20140731
  Transmission Date: 20150326
  Serious: Yes (Other)
  Sender: FDA-Public Use
  Company Number: US-UCBSA-086545

PATIENT
  Sex: Female
  Weight: 90.7 kg

DRUGS (10)
  1. KEPPRA [Suspect]
     Active Substance: LEVETIRACETAM
     Dosage: DOSE STRENGTH: 500MG
  2. ALBUTEROL. [Concomitant]
     Active Substance: ALBUTEROL
     Indication: ASTHMA
     Dosage: INHALER, 2 PUFFS
  3. IRON [Concomitant]
     Active Substance: IRON
     Indication: SUPPLEMENTATION THERAPY
     Dosage: 1 TAB, ONCE DAILY (QD)
     Route: 048
  4. KEPPRA [Suspect]
     Active Substance: LEVETIRACETAM
     Indication: EPILEPSY
     Dosage: 750 MG, 2X/DAY (BID)
     Route: 048
  5. GABAPENTIN. [Concomitant]
     Active Substance: GABAPENTIN
     Indication: SYSTEMIC LUPUS ERYTHEMATOSUS
  6. GABAPENTIN. [Concomitant]
     Active Substance: GABAPENTIN
     Indication: PAIN MANAGEMENT
     Dosage: UNK UNK, 3X/DAY (TID)
     Route: 048
  7. GABAPENTIN. [Concomitant]
     Active Substance: GABAPENTIN
     Indication: FIBROMYALGIA
  8. PRENATAL VITAMIN [Concomitant]
     Active Substance: VITAMINS
     Dosage: 1 DF, ONCE DAILY (QD)
     Route: 048
  9. KEPPRA [Suspect]
     Active Substance: LEVETIRACETAM
     Dosage: 1500 MG, 2X/DAY (BID)
     Route: 048
  10. PULMICORT TURBUHALER [Concomitant]
     Active Substance: BUDESONIDE
     Indication: ASTHMA
     Dosage: 180 ?G, 2X/DAY (BID), SINCE TWO YEARS, INHALER

REACTIONS (7)
  - Systemic lupus erythematosus [Recovering/Resolving]
  - Fibromyalgia [Recovering/Resolving]
  - Pain [Not Recovered/Not Resolved]
  - Discomfort [Not Recovered/Not Resolved]
  - Sinusitis [Recovered/Resolved]
  - Pneumonia [Recovered/Resolved]
  - Pregnancy [Recovered/Resolved]

NARRATIVE: CASE EVENT DATE: 2012
